FAERS Safety Report 23781242 (Version 1)
Quarter: 2024Q2

REPORT INFORMATION
  Report Type: Spontaneous
  Country: US (occurrence: US)
  Receive Date: 20240425
  Receipt Date: 20240425
  Transmission Date: 20240716
  Serious: Yes (Hospitalization, Other)
  Sender: FDA-Public Use
  Company Number: US-APOTEX-2024AP005012

PATIENT
  Age: 67 Year
  Sex: Male

DRUGS (1)
  1. ATORVASTATIN [Suspect]
     Active Substance: ATORVASTATIN
     Indication: Hyperlipidaemia
     Dosage: 20 MILLIGRAM, QD
     Route: 065

REACTIONS (6)
  - Immune-mediated myositis [Recovering/Resolving]
  - Antiacetylcholine receptor antibody positive [Recovering/Resolving]
  - Respiratory distress [Recovering/Resolving]
  - Dysphagia [Recovering/Resolving]
  - Paralysis [Recovering/Resolving]
  - Respiratory failure [Recovering/Resolving]
